FAERS Safety Report 4483689-0 (Version None)
Quarter: 2004Q4

REPORT INFORMATION
  Report Type: 
  Country: None (occurrence: None)
  Receive Date: 20041022
  Receipt Date: 20041022
  Transmission Date: 20050328
  Serious: Yes (Hospitalization)
  Sender: FDA-Public Use
  Company Number: None

PATIENT
  Age: 65 Year
  Sex: Male
  Weight: 122.4712 kg

DRUGS (7)
  1. CELEBREX [Suspect]
     Indication: ARTHRITIS
     Dosage: 200 MG BID PO (SEVERAL YEARS)
     Route: 048
  2. THALIDAMIDE [Concomitant]
  3. GLYBURIDE [Concomitant]
  4. ACTOS [Concomitant]
  5. ALTACE [Concomitant]
  6. NIFEDIPINE [Concomitant]
  7. ZOMETA [Concomitant]

REACTIONS (1)
  - CEREBROVASCULAR ACCIDENT [None]
